FAERS Safety Report 13495534 (Version 2)
Quarter: 2017Q2

REPORT INFORMATION
  Report Type: Spontaneous
  Country: BR (occurrence: BR)
  Receive Date: 20170428
  Receipt Date: 20170524
  Transmission Date: 20170830
  Serious: No
  Sender: FDA-Public Use
  Company Number: BR-PFIZER INC-2017174674

PATIENT
  Age: 16 Year
  Sex: Female

DRUGS (2)
  1. DOSTINEX [Suspect]
     Active Substance: CABERGOLINE
     Dosage: 0.5 MG, WEEKLY
     Dates: start: 20170423
  2. DOSTINEX [Suspect]
     Active Substance: CABERGOLINE
     Indication: THROMBOSIS
     Dosage: 0.5 MG, 2X/DAY
     Dates: start: 201704, end: 20170412

REACTIONS (2)
  - Product use in unapproved indication [Not Recovered/Not Resolved]
  - Drug administered to patient of inappropriate age [Not Recovered/Not Resolved]

NARRATIVE: CASE EVENT DATE: 20170411
